FAERS Safety Report 7924557-9 (Version None)
Quarter: 2011Q4

REPORT INFORMATION
  Report Type: 
  Country: None (occurrence: None)
  Receive Date: 20111117
  Receipt Date: 20110323
  Transmission Date: 20120403
  Serious: No
  Sender: FDA-Public Use
  Company Number: US-AMGEN-USASP2011015741

PATIENT
  Sex: Female

DRUGS (1)
  1. ENBREL [Suspect]
     Indication: RHEUMATOID ARTHRITIS
     Dosage: 50 MG, QWK
     Dates: start: 20100315

REACTIONS (7)
  - NEUROPATHY PERIPHERAL [None]
  - HEADACHE [None]
  - DIZZINESS [None]
  - PARANASAL SINUS HYPERSECRETION [None]
  - INJECTION SITE PAIN [None]
  - FACIAL PAIN [None]
  - INJECTION SITE HAEMATOMA [None]
